FAERS Safety Report 19718500 (Version 3)
Quarter: 2023Q1

REPORT INFORMATION
  Report Type: Spontaneous
  Country: US (occurrence: US)
  Receive Date: 20210818
  Receipt Date: 20230317
  Transmission Date: 20230418
  Serious: Yes (Hospitalization, Disabling, Other)
  Sender: FDA-Public Use
  Company Number: US-009507513-2101USA005559

PATIENT
  Sex: Female
  Weight: 124.4 kg

DRUGS (9)
  1. SINGULAIR [Suspect]
     Active Substance: MONTELUKAST SODIUM
     Indication: Asthma
     Dosage: UNK
     Route: 048
     Dates: start: 2006, end: 2010
  2. ZOLOFT [Suspect]
     Active Substance: SERTRALINE HYDROCHLORIDE
     Indication: Generalised anxiety disorder
     Dosage: 25 MILLIGRAM
     Dates: start: 200905
  3. ZOLOFT [Suspect]
     Active Substance: SERTRALINE HYDROCHLORIDE
     Dosage: 50 MILLIGRAM
     Dates: start: 2009
  4. ZOLOFT [Suspect]
     Active Substance: SERTRALINE HYDROCHLORIDE
     Dosage: 75 MILLIGRAM
     Dates: start: 200910
  5. ALBUTEROL SULFATE [Concomitant]
     Active Substance: ALBUTEROL SULFATE
     Dosage: UNK
  6. BENADRYL [Concomitant]
     Active Substance: DIPHENHYDRAMINE HYDROCHLORIDE
     Dosage: UNK
  7. CLARITIN [Concomitant]
     Active Substance: LORATADINE
     Dosage: UNK
  8. FLOVENT [Concomitant]
     Active Substance: FLUTICASONE PROPIONATE
     Dosage: UNK
  9. FLONASE [Concomitant]
     Active Substance: FLUTICASONE PROPIONATE
     Dosage: UNK

REACTIONS (43)
  - Weight increased [Not Recovered/Not Resolved]
  - Intentional self-injury [Not Recovered/Not Resolved]
  - Hyperphagia [Not Recovered/Not Resolved]
  - Abnormal behaviour [Recovering/Resolving]
  - Amnesia [Not Recovered/Not Resolved]
  - Feeling guilty [Unknown]
  - Polycystic ovaries [Unknown]
  - Glucose tolerance impaired [Unknown]
  - Major depression [Not Recovered/Not Resolved]
  - Neuropsychiatric symptoms [Not Recovered/Not Resolved]
  - Generalised anxiety disorder [Not Recovered/Not Resolved]
  - Disturbance in attention [Recovering/Resolving]
  - Aggression [Recovering/Resolving]
  - Depression [Not Recovered/Not Resolved]
  - Hallucination [Not Recovered/Not Resolved]
  - Dysphemia [Not Recovered/Not Resolved]
  - Tic [Not Recovered/Not Resolved]
  - Tremor [Not Recovered/Not Resolved]
  - Anxiety [Not Recovered/Not Resolved]
  - Suicidal ideation [Unknown]
  - Suicidal ideation [Unknown]
  - Post-traumatic stress disorder [Not Recovered/Not Resolved]
  - Dysuria [Unknown]
  - Urticaria [Unknown]
  - Swelling face [Unknown]
  - Peripheral swelling [Unknown]
  - Rash papular [Unknown]
  - Joint injury [Unknown]
  - Arthralgia [Unknown]
  - Haematuria [Unknown]
  - Abnormal uterine bleeding [Unknown]
  - Headache [Unknown]
  - Pain [Unknown]
  - Dizziness [Unknown]
  - Nausea [Unknown]
  - Muscle spasms [Unknown]
  - Adenomyosis [Unknown]
  - Concussion [Unknown]
  - Diarrhoea [Unknown]
  - Endometriosis [Unknown]
  - Gastrooesophageal reflux disease [Unknown]
  - Abdominal pain upper [Unknown]
  - Middle insomnia [Unknown]

NARRATIVE: CASE EVENT DATE: 20070101
